FAERS Safety Report 21960941 (Version 2)
Quarter: 2023Q1

REPORT INFORMATION
  Report Type: Spontaneous
  Country: IT (occurrence: IT)
  Receive Date: 20230207
  Receipt Date: 20230220
  Transmission Date: 20230417
  Serious: Yes (Hospitalization, Other)
  Sender: FDA-Public Use
  Company Number: IT-SUN PHARMACEUTICAL INDUSTRIES LTD-2023R1-377062

PATIENT
  Age: 52 Year
  Sex: Female

DRUGS (8)
  1. COTRIMOXAZOLE [Suspect]
     Active Substance: SULFAMETHOXAZOLE\TRIMETHOPRIM
     Indication: Septic shock
     Dosage: UNK (400/80 MG 2 FL EVERY 8 HOURS)
     Route: 042
     Dates: start: 20220518
  2. COTRIMOXAZOLE [Suspect]
     Active Substance: SULFAMETHOXAZOLE\TRIMETHOPRIM
     Indication: Osteomyelitis
  3. DAPTOMYCIN [Suspect]
     Active Substance: DAPTOMYCIN
     Indication: Antibiotic therapy
     Dosage: UNK
  4. OXACILLIN [Concomitant]
     Active Substance: OXACILLIN SODIUM
     Indication: Septic shock
     Dosage: 2 GRAM, Q4H
     Route: 042
     Dates: start: 20220414, end: 20220518
  5. OXACILLIN [Concomitant]
     Active Substance: OXACILLIN SODIUM
     Dosage: 2 GRAM, Q4H
     Route: 042
     Dates: start: 20220531, end: 20220623
  6. ENOXAPARIN [Concomitant]
     Active Substance: ENOXAPARIN
     Indication: Deep vein thrombosis
     Dosage: 6000 INTERNATIONAL UNIT, BID
     Route: 065
     Dates: start: 20220419, end: 20220623
  7. OMEPRAZOLE [Concomitant]
     Active Substance: OMEPRAZOLE
     Indication: Gastric ulcer
     Dosage: 40 MILLIGRAM, BID
     Route: 048
     Dates: start: 20220420
  8. DAPTOMYCIN [Concomitant]
     Active Substance: DAPTOMYCIN
     Indication: Septic shock
     Dosage: 700 MILLIGRAM, QID
     Route: 042
     Dates: start: 20220414, end: 20220623

REACTIONS (2)
  - Meningitis aseptic [Recovered/Resolved]
  - Neurological symptom [Recovered/Resolved]

NARRATIVE: CASE EVENT DATE: 20220531
